FAERS Safety Report 9330194 (Version 1)
Quarter: 2013Q2

REPORT INFORMATION
  Report Type: Spontaneous
  Country: US (occurrence: US)
  Receive Date: 20130604
  Receipt Date: 20130604
  Transmission Date: 20140414
  Serious: No
  Sender: FDA-Public Use
  Company Number: US-009507513-1305USA016472

PATIENT
  Age: 68 Year
  Sex: Female

DRUGS (4)
  1. ZIOPTAN [Suspect]
     Indication: GLAUCOMA
     Dosage: 1 GTT, QD (1DROP PER EYE PER DAY)
     Route: 047
     Dates: start: 201212
  2. MICARDIS [Concomitant]
  3. DYAZIDE [Concomitant]
  4. OMEPRAZOLE [Concomitant]

REACTIONS (1)
  - Eye pruritus [Not Recovered/Not Resolved]
